FAERS Safety Report 9896690 (Version 1)
Quarter: 2014Q1

REPORT INFORMATION
  Report Type: Spontaneous
  Country: US (occurrence: US)
  Receive Date: 20140213
  Receipt Date: 20140213
  Transmission Date: 20141002
  Serious: No
  Sender: FDA-Public Use
  Company Number: US-BRISTOL-MYERS SQUIBB COMPANY-18896373

PATIENT
  Age: 46 Year
  Sex: Female
  Weight: 77.1 kg

DRUGS (2)
  1. ABATACEPT SUBQ INJECTION 125MG/ML [Suspect]
     Dosage: LAST INJ:06MAY13
     Route: 058
     Dates: start: 201209
  2. ORENCIA [Suspect]
     Dosage: HER LAST INFUSION WAS IN AUG-2011 OR SEP-2011
     Route: 042
     Dates: start: 201105

REACTIONS (5)
  - Scratch [Unknown]
  - Flushing [Unknown]
  - Blood pressure increased [Unknown]
  - Body temperature fluctuation [Unknown]
  - Product quality issue [Unknown]
